FAERS Safety Report 7242838-1 (Version None)
Quarter: 2011Q1

REPORT INFORMATION
  Report Type: 
  Country: None (occurrence: None)
  Receive Date: 20110125
  Receipt Date: 20110110
  Transmission Date: 20110831
  Serious: Yes (Other)
  Sender: FDA-Public Use
  Company Number: US-SANOFI-AVENTIS-2011SA002084

PATIENT
  Age: 78 Year
  Sex: Male

DRUGS (2)
  1. AMIODARONE [Concomitant]
     Route: 065
     Dates: end: 20100901
  2. MULTAQ [Suspect]
     Indication: ATRIAL FIBRILLATION
     Route: 048
     Dates: start: 20100901, end: 20101201

REACTIONS (1)
  - CARDIAC FAILURE [None]
